FAERS Safety Report 12366988 (Version 8)
Quarter: 2017Q2

REPORT INFORMATION
  Report Type: Spontaneous
  Country: US (occurrence: US)
  Receive Date: 20160513
  Receipt Date: 20170526
  Transmission Date: 20170830
  Serious: Yes (Hospitalization, Other)
  Sender: FDA-Public Use
  Company Number: US-PFIZER INC-2016254164

PATIENT
  Age: 81 Year
  Sex: Female
  Weight: 77.98 kg

DRUGS (7)
  1. IBRANCE [Suspect]
     Active Substance: PALBOCICLIB
     Dosage: 100 MG, CYCLIC (D1-21 Q 28 DAYS)
     Route: 048
     Dates: start: 20160423
  2. IBRANCE [Suspect]
     Active Substance: PALBOCICLIB
     Dosage: 100 MG, CYCLIC (D1-21 Q 28 DAYS)
     Route: 048
  3. IBRANCE [Suspect]
     Active Substance: PALBOCICLIB
     Dosage: 100 MG, CYCLIC (D1-21 Q 28 DAYS)
     Route: 048
     Dates: start: 20160423
  4. MORPHINE [Concomitant]
     Active Substance: MORPHINE
     Dosage: UNK (EVERY 12 HOURS)
  5. IBRANCE [Suspect]
     Active Substance: PALBOCICLIB
     Dosage: 100 MG, CYCLIC (D1-21 Q 28 DAYS)
     Route: 048
  6. MSIR [Concomitant]
     Active Substance: MORPHINE SULFATE
     Dosage: UNK UNK, AS NEEDED (EVERY 4-6 HOURS)
  7. IBRANCE [Suspect]
     Active Substance: PALBOCICLIB
     Indication: BREAST CANCER METASTATIC
     Dosage: 125 MG, CYCLIC, (DAYS 1-21 Q28 DAYS)
     Route: 048
     Dates: start: 20160423

REACTIONS (17)
  - Productive cough [Not Recovered/Not Resolved]
  - Pleural effusion [Unknown]
  - Pain in extremity [Unknown]
  - Arthralgia [Unknown]
  - Anxiety [Unknown]
  - Pleuritic pain [Unknown]
  - Musculoskeletal chest pain [Unknown]
  - Peripheral swelling [Unknown]
  - Pain [Unknown]
  - Skin ulcer [Unknown]
  - Pruritus [Unknown]
  - Pneumonia [Not Recovered/Not Resolved]
  - White blood cell count decreased [Unknown]
  - Hunger [Unknown]
  - Lymphoedema [Not Recovered/Not Resolved]
  - Insomnia [Unknown]
  - Neoplasm progression [Unknown]

NARRATIVE: CASE EVENT DATE: 20170218
